FAERS Safety Report 6302713-3 (Version None)
Quarter: 2009Q3

REPORT INFORMATION
  Report Type: 
  Country: None (occurrence: None)
  Receive Date: 20090810
  Receipt Date: 20090731
  Transmission Date: 20100115
  Serious: Yes (Hospitalization)
  Sender: FDA-Public Use
  Company Number: PHHO2009NO09515

PATIENT
  Sex: Male
  Weight: 75 kg

DRUGS (3)
  1. CERTICAN [Suspect]
     Indication: RENAL CANCER METASTATIC
     Dosage: 10 MG, QD
     Route: 048
     Dates: start: 20090212
  2. CERTICAN [Suspect]
     Dosage: UNK
     Route: 048
     Dates: start: 20090710
  3. RADIATION THERAPY [Suspect]

REACTIONS (4)
  - DECREASED APPETITE [None]
  - DYSPHAGIA [None]
  - ERYTHEMA [None]
  - RADIATION OESOPHAGITIS [None]
